FAERS Safety Report 24147108 (Version 1)
Quarter: 2024Q3

REPORT INFORMATION
  Report Type: Spontaneous
  Country: US (occurrence: None)
  Receive Date: 20240727
  Receipt Date: 20240727
  Transmission Date: 20241016
  Serious: Yes (Hospitalization)
  Sender: Public
  Company Number: None

PATIENT
  Age: 81 Year
  Sex: Male
  Weight: 74.4 kg

DRUGS (3)
  1. FLUOROURACIL [Suspect]
     Active Substance: FLUOROURACIL
     Dates: end: 20240709
  2. LEUCOVORIN CALCIUM [Suspect]
     Active Substance: LEUCOVORIN CALCIUM
     Dates: end: 20240709
  3. ELOXATIN [Suspect]
     Active Substance: OXALIPLATIN
     Dates: end: 20240709

REACTIONS (13)
  - Neutropenia [None]
  - Therapy cessation [None]
  - Failure to thrive [None]
  - Anaemia [None]
  - Fatigue [None]
  - Nausea [None]
  - Intentional dose omission [None]
  - Therapeutic response decreased [None]
  - Feeling cold [None]
  - Chills [None]
  - Dizziness [None]
  - Staphylococcal infection [None]
  - Myocardial infarction [None]

NARRATIVE: CASE EVENT DATE: 20240723
